FAERS Safety Report 6077433-3 (Version None)
Quarter: 2009Q1

REPORT INFORMATION
  Report Type: 
  Country: None (occurrence: None)
  Receive Date: 20090213
  Receipt Date: 20081114
  Transmission Date: 20090719
  Serious: No
  Sender: FDA-Public Use
  Company Number: A0750814A

PATIENT
  Age: 52 Year
  Sex: Female

DRUGS (2)
  1. TREXIMET [Suspect]
     Indication: MIGRAINE
     Dosage: 85MG SINGLE DOSE
     Route: 048
     Dates: start: 20080819, end: 20080819
  2. ATENOLOL [Concomitant]
     Indication: HYPERTENSION
     Route: 048
     Dates: start: 20061121

REACTIONS (3)
  - DIZZINESS [None]
  - FEELING DRUNK [None]
  - MUSCULAR WEAKNESS [None]
